FAERS Safety Report 24006279 (Version 1)
Quarter: 2024Q2

REPORT INFORMATION
  Report Type: Spontaneous
  Country: US (occurrence: US)
  Receive Date: 20240624
  Receipt Date: 20240624
  Transmission Date: 20240717
  Serious: No
  Sender: FDA-Public Use
  Company Number: US-MAYNE PHARMA-2023TMD00402

PATIENT

DRUGS (2)
  1. IMVEXXY [Suspect]
     Active Substance: ESTRADIOL
     Indication: Vulvovaginal dryness
     Dosage: STARTER PACK
     Route: 067
     Dates: start: 2021
  2. IMVEXXY [Suspect]
     Active Substance: ESTRADIOL
     Indication: Dyspareunia
     Dosage: 4 ?G, 2X/WEEK
     Route: 067
     Dates: end: 202304

REACTIONS (2)
  - Hot flush [Recovering/Resolving]
  - Night sweats [Unknown]

NARRATIVE: CASE EVENT DATE: 20230101
